FAERS Safety Report 22168330 (Version 1)
Quarter: 2023Q2

REPORT INFORMATION
  Report Type: Spontaneous
  Country: TW (occurrence: None)
  Receive Date: 20230403
  Receipt Date: 20230403
  Transmission Date: 20230721
  Serious: Yes (Other)
  Sender: FDA-Public Use
  Company Number: 2023A072085

PATIENT
  Age: 68 Year
  Sex: Female
  Weight: 52 kg

DRUGS (5)
  1. DAPAGLIFLOZIN [Suspect]
     Active Substance: DAPAGLIFLOZIN
     Route: 048
  2. GLIMEPIRIDE [Concomitant]
     Active Substance: GLIMEPIRIDE
  3. IRBESARTAN [Concomitant]
     Active Substance: IRBESARTAN
  4. ATORVASTATIN [Concomitant]
     Active Substance: ATORVASTATIN
  5. METHYLCOBALAMIN [Concomitant]
     Active Substance: METHYLCOBALAMIN

REACTIONS (6)
  - Glomerular filtration rate decreased [Unknown]
  - Urine albumin/creatinine ratio increased [Unknown]
  - Oedema peripheral [Unknown]
  - Blood glucose increased [Unknown]
  - Hypertension [Unknown]
  - Glycosylated haemoglobin increased [Unknown]
